FAERS Safety Report 17182032 (Version 1)
Quarter: 2019Q4

REPORT INFORMATION
  Report Type: Spontaneous
  Country: US (occurrence: US)
  Receive Date: 20191126
  Receipt Date: 20191126
  Transmission Date: 20200122
  Serious: No
  Sender: FDA-Public Use
  Company Number: None

PATIENT

DRUGS (9)
  1. PREDNISONE. [Concomitant]
     Active Substance: PREDNISONE
  2. FLUTICASONE. [Concomitant]
     Active Substance: FLUTICASONE
  3. ONE-A-DAY NOS [Concomitant]
     Active Substance: MINERALS\VITAMINS
  4. IBUPROFEN. [Concomitant]
     Active Substance: IBUPROFEN
  5. LISINOPRIL. [Concomitant]
     Active Substance: LISINOPRIL
  6. CALCIUM [Concomitant]
     Active Substance: CALCIUM
  7. RANITIDINE. [Suspect]
     Active Substance: RANITIDINE
  8. ACETAMINOPHEN. [Concomitant]
     Active Substance: ACETAMINOPHEN
  9. VITAMIN D [Concomitant]
     Active Substance: VITAMIN D NOS

REACTIONS (2)
  - Blister [None]
  - Urticaria [None]
